FAERS Safety Report 9847508 (Version 2)
Quarter: 2014Q1

REPORT INFORMATION
  Report Type: Spontaneous
  Country: US (occurrence: US)
  Receive Date: 20140127
  Receipt Date: 20140127
  Transmission Date: 20141002
  Serious: No
  Sender: FDA-Public Use
  Company Number: US-US-EMD SERONO, INC.-233678J08USA

PATIENT
  Sex: Female

DRUGS (2)
  1. REBIF [Suspect]
     Indication: MULTIPLE SCLEROSIS
     Route: 058
     Dates: start: 2006, end: 2008
  2. IBUPROFEN [Suspect]

REACTIONS (4)
  - Abdominal discomfort [Unknown]
  - Influenza [Unknown]
  - Injection site macule [Unknown]
  - Injection site erythema [Unknown]
